FAERS Safety Report 7803881-4 (Version None)
Quarter: 2011Q4

REPORT INFORMATION
  Report Type: 
  Country: None (occurrence: None)
  Receive Date: 20111010
  Receipt Date: 20111005
  Transmission Date: 20120403
  Serious: Yes (Other)
  Sender: FDA-Public Use
  Company Number: US-PFIZER INC-2011180037

PATIENT
  Sex: Female

DRUGS (9)
  1. FOSAMAX [Concomitant]
  2. ADVAIR DISKUS 100/50 [Concomitant]
  3. XOPENEX [Concomitant]
  4. SYNTHROID [Concomitant]
  5. LYRICA [Suspect]
     Dosage: 600 MG
  6. SPIRIVA [Concomitant]
  7. CELEBREX [Concomitant]
  8. CYMBALTA [Concomitant]
  9. LYRICA [Suspect]
     Dosage: 150 MG, 2X/DAY
     Route: 048
     Dates: start: 20100804

REACTIONS (4)
  - FEELING ABNORMAL [None]
  - CONFUSIONAL STATE [None]
  - IMPAIRED DRIVING ABILITY [None]
  - ROAD TRAFFIC ACCIDENT [None]
